FAERS Safety Report 14674914 (Version 1)
Quarter: 2018Q1

REPORT INFORMATION
  Report Type: Spontaneous
  Country: US (occurrence: US)
  Receive Date: 20180323
  Receipt Date: 20180323
  Transmission Date: 20180509
  Serious: Yes (Death, Hospitalization)
  Sender: FDA-Public Use
  Company Number: US-FRESENIUS KABI-FK201803364

PATIENT
  Age: 80 Year
  Sex: Female

DRUGS (1)
  1. ANASTROZOLE (MANUFACTURER UNKNOWN) [Suspect]
     Active Substance: ANASTROZOLE
     Indication: INVASIVE DUCTAL BREAST CARCINOMA
     Route: 065

REACTIONS (3)
  - Acute hepatic failure [Fatal]
  - Pseudocirrhosis [Unknown]
  - Multiple organ dysfunction syndrome [Fatal]
